FAERS Safety Report 9596083 (Version 2)
Quarter: 2013Q4

REPORT INFORMATION
  Report Type: Spontaneous
  Country: US (occurrence: US)
  Receive Date: 20131004
  Receipt Date: 20131015
  Transmission Date: 20140711
  Serious: No
  Sender: FDA-Public Use
  Company Number: US-BAYER-2013-116161

PATIENT
  Age: 36 Year
  Sex: Female

DRUGS (1)
  1. FINACEA [Suspect]
     Indication: ACNE
     Dosage: DAILY
     Route: 061

REACTIONS (3)
  - Photopsia [None]
  - Headache [None]
  - Exposure during pregnancy [None]
